FAERS Safety Report 6311104-0 (Version None)
Quarter: 2009Q3

REPORT INFORMATION
  Report Type: 
  Country: None (occurrence: None)
  Receive Date: 20090817
  Receipt Date: 20090810
  Transmission Date: 20100115
  Serious: Yes (Hospitalization, Other)
  Sender: FDA-Public Use
  Company Number: US-BAYER-200921479NA

PATIENT
  Age: 21 Year
  Sex: Female

DRUGS (6)
  1. MIRENA [Suspect]
     Indication: CONTRACEPTION
     Dosage: CONTINUOUS
     Route: 015
     Dates: start: 20080104, end: 20090515
  2. FELBATOL [Concomitant]
  3. KEPPRA [Concomitant]
  4. COZAAR [Concomitant]
  5. PLAQUENIL [Concomitant]
  6. FOLIC ACID [Concomitant]

REACTIONS (5)
  - ABDOMINAL PAIN LOWER [None]
  - ECTOPIC PREGNANCY WITH INTRAUTERINE DEVICE [None]
  - OVARIAN CYST [None]
  - PERITONEAL HAEMORRHAGE [None]
  - VAGINAL HAEMORRHAGE [None]
